FAERS Safety Report 10172034 (Version 2)
Quarter: 2014Q2

REPORT INFORMATION
  Report Type: Spontaneous
  Country: CR (occurrence: CR)
  Receive Date: 20140515
  Receipt Date: 20140515
  Transmission Date: 20141212
  Serious: Yes (Death, Hospitalization)
  Sender: FDA-Public Use
  Company Number: PHHY2014CR049267

PATIENT
  Age: 63 Year
  Sex: Male

DRUGS (2)
  1. AFINITOR [Suspect]
     Indication: RENAL CANCER
     Dosage: 10 MG, QD
     Route: 048
     Dates: start: 201309, end: 20140415
  2. TRAMAL [Concomitant]

REACTIONS (2)
  - Death [Fatal]
  - Pneumonia [Recovering/Resolving]
